FAERS Safety Report 14778495 (Version 1)
Quarter: 2018Q2

REPORT INFORMATION
  Report Type: Spontaneous
  Country: US (occurrence: US)
  Receive Date: 20180419
  Receipt Date: 20180419
  Transmission Date: 20180711
  Serious: Yes (Other)
  Sender: FDA-Public Use
  Company Number: US-RECKITT BENCKISER HEALTHCARE INT LIMITED-RB-84855-2018

PATIENT
  Age: 86 Year
  Sex: Male

DRUGS (2)
  1. DELSYM COUGH PLUS CHEST CONGESTION DM [Suspect]
     Active Substance: DEXTROMETHORPHAN HYDROBROMIDE\GUAIFENESIN
     Dosage: 10 ML, UNK
     Route: 065
     Dates: start: 201804
  2. DELSYM COUGH PLUS CHEST CONGESTION DM [Suspect]
     Active Substance: DEXTROMETHORPHAN HYDROBROMIDE\GUAIFENESIN
     Indication: PRODUCT USED FOR UNKNOWN INDICATION
     Dosage: 20 UNK, UNK
     Route: 065
     Dates: start: 20180410

REACTIONS (6)
  - Abnormal dreams [Recovered/Resolved]
  - Overdose [Recovered/Resolved]
  - Hallucination, visual [None]
  - Hallucination [Recovered/Resolved]
  - Somnolence [Recovered/Resolved]
  - Therapy change [None]

NARRATIVE: CASE EVENT DATE: 201804
